FAERS Safety Report 13563192 (Version 4)
Quarter: 2017Q2

REPORT INFORMATION
  Report Type: Spontaneous
  Country: US (occurrence: US)
  Receive Date: 20170519
  Receipt Date: 20170614
  Transmission Date: 20170830
  Serious: Yes (Other)
  Sender: FDA-Public Use
  Company Number: US-009507513-1705USA006557

PATIENT
  Sex: Male

DRUGS (2)
  1. INTRON A [Suspect]
     Active Substance: INTERFERON ALFA-2B
     Indication: MALIGNANT MELANOMA
     Dosage: UNK, TIW
     Dates: start: 20170510
  2. INTRON A [Suspect]
     Active Substance: INTERFERON ALFA-2B
     Dosage: UNK
     Dates: start: 2017

REACTIONS (9)
  - Gingival bleeding [Unknown]
  - Pain [Unknown]
  - Dry skin [Unknown]
  - Depressed level of consciousness [Unknown]
  - Headache [Unknown]
  - Rash [Unknown]
  - Depression [Not Recovered/Not Resolved]
  - Pyrexia [Unknown]
  - Chills [Unknown]

NARRATIVE: CASE EVENT DATE: 2017
